FAERS Safety Report 14679873 (Version 1)
Quarter: 2018Q1

REPORT INFORMATION
  Report Type: Report from Study
  Country: CO (occurrence: CO)
  Receive Date: 20180326
  Receipt Date: 20180326
  Transmission Date: 20180509
  Serious: Yes (Other)
  Sender: FDA-Public Use
  Company Number: CO-AMGEN-COLSL2018039329

PATIENT
  Age: 84 Year
  Sex: Female

DRUGS (1)
  1. PROLIA [Suspect]
     Active Substance: DENOSUMAB
     Indication: OSTEOPOROSIS POSTMENOPAUSAL
     Dosage: 60 MG, Q6MO
     Route: 058
     Dates: start: 20170912

REACTIONS (6)
  - Hip arthroplasty [Unknown]
  - Ill-defined disorder [Unknown]
  - Gastrointestinal infection [Recovering/Resolving]
  - Blood pressure abnormal [Recovering/Resolving]
  - Hyperglycaemia [Recovering/Resolving]
  - Arthralgia [Not Recovered/Not Resolved]

NARRATIVE: CASE EVENT DATE: 20180310
